FAERS Safety Report 8409380-3 (Version None)
Quarter: 2012Q2

REPORT INFORMATION
  Report Type: 
  Country: None (occurrence: None)
  Receive Date: 20120605
  Receipt Date: 20120529
  Transmission Date: 20120825
  Serious: No
  Sender: FDA-Public Use
  Company Number: US-BIOGENIDEC-2012BI019028

PATIENT
  Sex: Female

DRUGS (1)
  1. TYSABRI [Suspect]
     Indication: MULTIPLE SCLEROSIS
     Route: 042
     Dates: start: 20110812

REACTIONS (8)
  - UHTHOFF'S PHENOMENON [None]
  - PARAESTHESIA [None]
  - THROAT TIGHTNESS [None]
  - HEMIPARESIS [None]
  - MULTIPLE SCLEROSIS [None]
  - VIITH NERVE PARALYSIS [None]
  - HYPOAESTHESIA [None]
  - FATIGUE [None]
